FAERS Safety Report 10149108 (Version 1)
Quarter: 2014Q2

REPORT INFORMATION
  Report Type: Spontaneous
  Country: IN (occurrence: None)
  Receive Date: 20140430
  Receipt Date: 20140430
  Transmission Date: 20141212
  Serious: Yes (Hospitalization)
  Sender: FDA-Public Use
  Company Number: ANI_2014_1365487

PATIENT
  Age: 27 Year
  Sex: Female

DRUGS (4)
  1. PHENYTOIN (NON-SPECIFIC) [Suspect]
     Indication: CONVULSION
     Route: 042
  2. CEFTRIAXONE (NON-SPECIFIC) [Suspect]
     Indication: PREOPERATIVE CARE
  3. CEFTRIAXONE (NON-SPECIFIC) [Suspect]
     Indication: PROPHYLAXIS
  4. PHENYTOIN 300MG [Concomitant]

REACTIONS (1)
  - Sinus bradycardia [None]
